FAERS Safety Report 7618692-2 (Version None)
Quarter: 2011Q3

REPORT INFORMATION
  Report Type: 
  Country: None (occurrence: None)
  Receive Date: 20110718
  Receipt Date: 20110715
  Transmission Date: 20111222
  Serious: Yes (Other)
  Sender: FDA-Public Use
  Company Number: US-ABBOTT-11P-163-0837121-00

PATIENT
  Sex: Male
  Weight: 81.72 kg

DRUGS (4)
  1. NIASPAN [Suspect]
     Indication: PRODUCT USED FOR UNKNOWN INDICATION
  2. ASPIRIN [Concomitant]
     Indication: PRODUCT USED FOR UNKNOWN INDICATION
  3. NIASPAN [Suspect]
  4. CRESTOR [Concomitant]
     Indication: PRODUCT USED FOR UNKNOWN INDICATION

REACTIONS (7)
  - AMNESIA [None]
  - WRONG TECHNIQUE IN DRUG USAGE PROCESS [None]
  - TRANSIENT GLOBAL AMNESIA [None]
  - FLUSHING [None]
  - BURNING SENSATION [None]
  - HYPERHIDROSIS [None]
  - ERYTHEMA [None]
